FAERS Safety Report 7343447-6 (Version None)
Quarter: 2011Q1

REPORT INFORMATION
  Report Type: 
  Country: None (occurrence: None)
  Receive Date: 20110310
  Receipt Date: 20100909
  Transmission Date: 20110831
  Serious: Yes (Other)
  Sender: FDA-Public Use
  Company Number: US-BAYER-201012508NA

PATIENT
  Sex: Female
  Weight: 127 kg

DRUGS (17)
  1. LOTENSIN [Concomitant]
  2. YAZ [Suspect]
     Indication: ACNE
     Dosage: UNK
     Dates: start: 20050101, end: 20060101
  3. AMOXICILLIN [Concomitant]
  4. UNCODEABLE ^UNCLASSIFIABLE^ [Concomitant]
  5. ADVAIR DISKUS 100/50 [Concomitant]
  6. YAZ [Suspect]
     Indication: PREMENSTRUAL SYNDROME
  7. CEPHALEXIN [Concomitant]
  8. ZITHROMAX [Concomitant]
  9. UNCODEABLE ^UNCLASSIFIABLE^ [Concomitant]
  10. YASMIN [Suspect]
  11. CYCLOBENZAPRINE [Concomitant]
  12. ALBUTEROL [Concomitant]
  13. YASMIN [Suspect]
     Indication: PREMENSTRUAL SYNDROME
  14. LIPITOR [Concomitant]
  15. LISINOPRIL [Concomitant]
  16. YASMIN [Suspect]
     Indication: ACNE
     Dosage: UNK
     Dates: start: 20050101, end: 20060101
  17. HYDROCODONE BITARTRATE [Concomitant]

REACTIONS (4)
  - OEDEMA PERIPHERAL [None]
  - PARAESTHESIA [None]
  - DEEP VEIN THROMBOSIS [None]
  - PAIN IN EXTREMITY [None]
